FAERS Safety Report 23068390 (Version 1)
Quarter: 2023Q4

REPORT INFORMATION
  Report Type: Spontaneous
  Country: US (occurrence: None)
  Receive Date: 20231016
  Receipt Date: 20231016
  Transmission Date: 20240110
  Serious: No
  Sender: FDA-Public Use
  Company Number: US-ARIS GLOBAL-ADM202307-002901

PATIENT
  Sex: Female

DRUGS (1)
  1. GOCOVRI [Suspect]
     Active Substance: AMANTADINE
     Indication: Product used for unknown indication
     Dosage: NOT PROVIDED

REACTIONS (1)
  - Rash [Not Recovered/Not Resolved]
